FAERS Safety Report 4804843-1 (Version None)
Quarter: 2005Q4

REPORT INFORMATION
  Report Type: 
  Country: None (occurrence: None)
  Receive Date: 20051017
  Receipt Date: 20051007
  Transmission Date: 20060501
  Serious: Yes (Death, Life-Threatening)
  Sender: FDA-Public Use
  Company Number: HQWYE700504AUG05

PATIENT
  Age: 62 Year
  Sex: Female
  Weight: 67.9 kg

DRUGS (1)
  1. MYLOTARG [Suspect]
     Indication: ACUTE MYELOID LEUKAEMIA
     Dosage: 16 MG 1X PER 1 DAY, INTRAVENOUS
     Route: 042
     Dates: start: 20050629, end: 20050629

REACTIONS (2)
  - CONDITION AGGRAVATED [None]
  - EJECTION FRACTION DECREASED [None]
